FAERS Safety Report 6535114-3 (Version None)
Quarter: 2010Q1

REPORT INFORMATION
  Report Type: 
  Country: None (occurrence: None)
  Receive Date: 20100113
  Receipt Date: 20100104
  Transmission Date: 20100710
  Serious: Yes (Hospitalization)
  Sender: FDA-Public Use
  Company Number: US-BIOGENIDEC-2009BI020849

PATIENT
  Age: 51 Year
  Sex: Female

DRUGS (5)
  1. TYSABRI [Suspect]
     Indication: MULTIPLE SCLEROSIS
     Route: 042
     Dates: start: 20090512, end: 20090915
  2. BENADRYL [Concomitant]
     Indication: PREMEDICATION
     Route: 042
     Dates: start: 20090901
  3. PREDNISONE [Concomitant]
     Indication: PREMEDICATION
     Dates: start: 20091001
  4. TYLENOL (CAPLET) [Concomitant]
     Indication: PREMEDICATION
     Dates: start: 20090101
  5. CLARITIN [Concomitant]
     Indication: PREMEDICATION
     Dates: start: 20090101

REACTIONS (27)
  - ABDOMINAL DISCOMFORT [None]
  - CHEST DISCOMFORT [None]
  - CHILLS [None]
  - COLD SWEAT [None]
  - COUGH [None]
  - DIARRHOEA [None]
  - DIZZINESS [None]
  - DRUG INTOLERANCE [None]
  - DYSPHONIA [None]
  - DYSPNOEA [None]
  - FALL [None]
  - FATIGUE [None]
  - FEELING DRUNK [None]
  - HEADACHE [None]
  - HYPOTENSION [None]
  - MUSCLE RIGIDITY [None]
  - NASOPHARYNGITIS [None]
  - NAUSEA [None]
  - PAIN IN EXTREMITY [None]
  - PALLOR [None]
  - PARALYSIS [None]
  - PHOTOPHOBIA [None]
  - SOMNOLENCE [None]
  - SWELLING FACE [None]
  - TREMOR [None]
  - VISUAL IMPAIRMENT [None]
  - VOMITING [None]
